FAERS Safety Report 10187230 (Version 1)
Quarter: 2014Q2

REPORT INFORMATION
  Report Type: Spontaneous
  Country: US (occurrence: None)
  Receive Date: 20140520
  Receipt Date: 20140520
  Transmission Date: 20141212
  Serious: Yes (Hospitalization)
  Sender: FDA-Public Use
  Company Number: FK201401786

PATIENT
  Age: 4 Year
  Sex: Male

DRUGS (10)
  1. VINBLASTINE (MANUFACTURER UNKNOWN) (VINBLASTINE SULFATE) (VINBLASTINE SULFATE) [Suspect]
     Indication: MEDULLOBLASTOMA
     Dosage: 4 MG/M2  ON DAYS 1 AND 7
  2. CYCLOPHOSPHAMIDE (MANUFACTURER UNKNOWN) (CYCLOPHOPHAMIDE) [Suspect]
     Indication: MEDULLOBLASTOMA
     Dosage: 1000 MG/M2 ON DAYS 1 AND 2
  3. GABAPENTIN (GABAPENTIN) [Concomitant]
  4. MEGESTROL (MEGESTROL) [Concomitant]
  5. PENTAMIDINE (PENTAMIDINE) [Concomitant]
  6. ONDANSETRON (ONDANSETRON) [Concomitant]
  7. LORAZEPAM (LORAZEPAM) [Concomitant]
  8. DOCUSATE (DOCUSATE) [Concomitant]
  9. POLYETHYLENE GLYCOL (MACROGOL) [Concomitant]
  10. CETUXIMAB (CETUXIMAB) (CETUXIMAB) [Suspect]
     Indication: MEDULLOBLASTOMA
     Dosage: 250 MG/M2 ON DAYS 7,14, AND 21

REACTIONS (11)
  - Feeling abnormal [None]
  - Hypomagnesaemia [None]
  - Tetany [None]
  - Hypokalaemia [None]
  - Tachycardia [None]
  - Rash pustular [None]
  - Folliculitis [None]
  - Grimacing [None]
  - Infusion site pain [None]
  - Blood sodium decreased [None]
  - Electrocardiogram QT prolonged [None]
